FAERS Safety Report 4910922-0 (Version None)
Quarter: 2006Q1

REPORT INFORMATION
  Report Type: 
  Country: None (occurrence: None)
  Receive Date: 20060214
  Receipt Date: 20060126
  Transmission Date: 20060701
  Serious: Yes (Life-Threatening, Hospitalization)
  Sender: FDA-Public Use
  Company Number: JP-ROCHE-434370

PATIENT
  Age: 7 Year
  Sex: Female

DRUGS (2)
  1. TAMIFLU [Suspect]
     Route: 048
     Dates: start: 20060113, end: 20060113
  2. 1 CONCOMITANT DRUG [Concomitant]
     Dosage: DRUG NAME REPORTED AS MAO-TO (CHINESE HERBAL MEDICINE)
     Route: 048
     Dates: start: 20060113, end: 20060113

REACTIONS (4)
  - ABNORMAL BEHAVIOUR [None]
  - DELIRIUM FEBRILE [None]
  - ENCEPHALITIS [None]
  - ENCEPHALOPATHY [None]
